FAERS Safety Report 7587089-6 (Version None)
Quarter: 2011Q3

REPORT INFORMATION
  Report Type: 
  Country: None (occurrence: None)
  Receive Date: 20110701
  Receipt Date: 20110620
  Transmission Date: 20111222
  Serious: Yes (Other)
  Sender: FDA-Public Use
  Company Number: PHHY2011CA51112

PATIENT

DRUGS (4)
  1. ACE INHIBITOR NOS [Concomitant]
  2. DIURETICS [Concomitant]
  3. CALCIUM CHANNEL BLOCKERS [Concomitant]
  4. ALISKIREN [Suspect]
     Dosage: 300 MG DAILY

REACTIONS (3)
  - DRUG INEFFECTIVE [None]
  - CONGENITAL CYSTIC KIDNEY DISEASE [None]
  - HYPERTENSION [None]
